FAERS Safety Report 5081951-4 (Version None)
Quarter: 2006Q3

REPORT INFORMATION
  Report Type: 
  Country: None (occurrence: None)
  Receive Date: 20060811
  Receipt Date: 20060731
  Transmission Date: 20061208
  Serious: Yes (Disabling)
  Sender: FDA-Public Use
  Company Number: 430016M06DEU

PATIENT
  Age: 40 Year
  Sex: Male

DRUGS (4)
  1. MITOXANTRONE [Suspect]
     Indication: PROGRESSIVE MULTIPLE SCLEROSIS
     Dosage: INTRAVENOUS; SEE IMAGE
     Route: 042
     Dates: start: 20051122, end: 20051122
  2. MITOXANTRONE [Suspect]
     Indication: PROGRESSIVE MULTIPLE SCLEROSIS
     Dosage: INTRAVENOUS; SEE IMAGE
     Route: 042
     Dates: start: 20060131, end: 20060131
  3. MITOXANTRONE [Suspect]
     Indication: PROGRESSIVE MULTIPLE SCLEROSIS
     Dosage: INTRAVENOUS; SEE IMAGE
     Route: 042
     Dates: start: 20060327, end: 20060327
  4. MITOXANTRONE [Suspect]
     Indication: PROGRESSIVE MULTIPLE SCLEROSIS
     Dosage: INTRAVENOUS; SEE IMAGE
     Route: 042
     Dates: start: 20060607, end: 20060607

REACTIONS (2)
  - CONDITION AGGRAVATED [None]
  - PSORIASIS [None]
